FAERS Safety Report 9444695 (Version 2)
Quarter: 2013Q3

REPORT INFORMATION
  Report Type: Spontaneous
  Country: US (occurrence: US)
  Receive Date: 20130807
  Receipt Date: 20130905
  Transmission Date: 20140515
  Serious: Yes (Other)
  Sender: FDA-Public Use
  Company Number: US-PFIZER INC-2013226533

PATIENT
  Age: 60 Year
  Sex: Female

DRUGS (5)
  1. XELJANZ [Suspect]
     Indication: RHEUMATOID ARTHRITIS
     Dosage: 5 MG, 2X/DAY
     Route: 048
     Dates: start: 20121220, end: 20130410
  2. AZULFIDINE [Suspect]
     Dosage: UNK
  3. ARAVA [Suspect]
     Indication: RHEUMATOID ARTHRITIS
     Dosage: 20 MG, 1X/DAY (QD)
     Dates: start: 20111201, end: 20130711
  4. ZOLOFT [Concomitant]
     Indication: DEPRESSION
     Dosage: 100, 2X/DAY
     Dates: start: 20130126
  5. MEDROL [Concomitant]
     Indication: RHEUMATOID ARTHRITIS
     Dosage: 4 MG, 1X/DAY (QD)
     Dates: start: 20090820

REACTIONS (1)
  - Deafness [Not Recovered/Not Resolved]
